FAERS Safety Report 5545496-7 (Version None)
Quarter: 2007Q4

REPORT INFORMATION
  Report Type: 
  Country: None (occurrence: None)
  Receive Date: 20071211
  Receipt Date: 20070125
  Transmission Date: 20080405
  Serious: No
  Sender: FDA-Public Use
  Company Number: US-AMGEN-KDL208645

PATIENT
  Sex: Female

DRUGS (4)
  1. ENBREL [Suspect]
     Indication: RHEUMATOID ARTHRITIS
     Route: 058
     Dates: start: 19981101
  2. MOBIC [Concomitant]
  3. NORVASC [Concomitant]
  4. ULTRACET [Concomitant]

REACTIONS (4)
  - DARK CIRCLES UNDER EYES [None]
  - LACRIMATION INCREASED [None]
  - VISION BLURRED [None]
  - VISUAL DISTURBANCE [None]
